FAERS Safety Report 5225062-3 (Version None)
Quarter: 2007Q1

REPORT INFORMATION
  Report Type: 
  Country: None (occurrence: None)
  Receive Date: 20070131
  Receipt Date: 20070102
  Transmission Date: 20070707
  Serious: No
  Sender: FDA-Public Use
  Company Number: PL-BAXTER-2006BH015270

PATIENT
  Age: 11 Year
  Sex: Male
  Weight: 53 kg

DRUGS (1)
  1. DEXTRAN 40 10% IN SODIUM CHLORIDE 0.9% [Suspect]
     Indication: NEPHROTIC SYNDROME
     Route: 042
     Dates: start: 20061201, end: 20061201

REACTIONS (6)
  - ANXIETY [None]
  - BLOOD PRESSURE DECREASED [None]
  - BREAST DISCOMFORT [None]
  - DYSPNOEA [None]
  - FLUSHING [None]
  - TACHYCARDIA [None]
